FAERS Safety Report 5849676-2 (Version None)
Quarter: 2008Q3

REPORT INFORMATION
  Report Type: 
  Country: None (occurrence: None)
  Receive Date: 20080819
  Receipt Date: 20080807
  Transmission Date: 20090109
  Serious: Yes (Other)
  Sender: FDA-Public Use
  Company Number: JP-PURDUE-MAG_2008_0000709

PATIENT
  Age: 80 Year
  Sex: Male

DRUGS (7)
  1. OXYCODONE HCL [Suspect]
     Indication: POST HERPETIC NEURALGIA
     Dosage: 10 MG, DAILY
     Route: 048
     Dates: start: 20070814, end: 20070821
  2. TRYPTANOL [Concomitant]
     Indication: DRUG USE FOR UNKNOWN INDICATION
     Dosage: 10 MG, DAILY
     Route: 048
     Dates: start: 20070814, end: 20070821
  3. OXYCODONE HCL [Suspect]
     Indication: POST HERPETIC NEURALGIA
     Route: 048
  4. NOVAMIN [Concomitant]
     Indication: LYMPHOMA
     Dosage: 15 MG, DAILY
     Route: 048
     Dates: start: 20070814, end: 20070821
  5. MOBIC [Concomitant]
     Indication: POST HERPETIC NEURALGIA
     Dosage: 10 MG, DAILY
     Route: 048
     Dates: start: 20070814, end: 20070821
  6. FAMOTIDINE [Concomitant]
     Indication: POST HERPETIC NEURALGIA
     Dosage: 20 MG, DAILY
     Route: 048
     Dates: start: 20070814, end: 20070814
  7. MAGMITT [Concomitant]
     Indication: POST HERPETIC NEURALGIA

REACTIONS (2)
  - ASTHENIA [None]
  - HYPOPHAGIA [None]
